FAERS Safety Report 17939297 (Version 1)
Quarter: 2020Q2

REPORT INFORMATION
  Report Type: Spontaneous
  Country: GR (occurrence: GR)
  Receive Date: 20200624
  Receipt Date: 20200624
  Transmission Date: 20200714
  Serious: Yes (Other)
  Sender: FDA-Public Use
  Company Number: GR-PFIZER INC-2020241049

PATIENT
  Age: 65 Year
  Sex: Female

DRUGS (9)
  1. LYRICA [Suspect]
     Active Substance: PREGABALIN
     Dosage: 75 MG, 2X/DAY
     Route: 048
     Dates: start: 201911
  2. MINITRAN [AMITRIPTYLINE HYDROCHLORIDE;PERPHENAZINE] [Suspect]
     Active Substance: AMITRIPTYLINE\PERPHENAZINE
     Dosage: 2-10, 1X/DAY
     Route: 048
     Dates: start: 202006
  3. MINITRAN [AMITRIPTYLINE HYDROCHLORIDE;PERPHENAZINE] [Suspect]
     Active Substance: AMITRIPTYLINE\PERPHENAZINE
     Indication: SOMATIC SYMPTOM DISORDER
     Dosage: UNK
     Route: 048
     Dates: start: 201906
  4. LYRICA [Suspect]
     Active Substance: PREGABALIN
     Dosage: UNK
     Route: 048
     Dates: end: 202006
  5. LYRICA [Suspect]
     Active Substance: PREGABALIN
     Indication: SOMATIC SYMPTOM DISORDER
     Dosage: UNK
     Route: 048
     Dates: start: 201906
  6. ONELAR [Suspect]
     Active Substance: DULOXETINE HYDROCHLORIDE
     Dosage: 150 MG, DAILY
     Route: 048
     Dates: start: 201911
  7. ONELAR [Suspect]
     Active Substance: DULOXETINE HYDROCHLORIDE
     Dosage: 30 MG, 2X/DAY
     Route: 048
     Dates: start: 202006
  8. MINITRAN [AMITRIPTYLINE HYDROCHLORIDE;PERPHENAZINE] [Suspect]
     Active Substance: AMITRIPTYLINE\PERPHENAZINE
     Dosage: 2-10, 2X/DAY
     Route: 048
     Dates: start: 201911
  9. ONELAR [Suspect]
     Active Substance: DULOXETINE HYDROCHLORIDE
     Indication: SOMATIC SYMPTOM DISORDER
     Dosage: UNK
     Route: 048
     Dates: start: 201906

REACTIONS (9)
  - Spinal disorder [Unknown]
  - Gait disturbance [Not Recovered/Not Resolved]
  - Tremor [Not Recovered/Not Resolved]
  - Fatigue [Not Recovered/Not Resolved]
  - Fall [Unknown]
  - Ligament sprain [Not Recovered/Not Resolved]
  - Condition aggravated [Not Recovered/Not Resolved]
  - Hypoaesthesia [Not Recovered/Not Resolved]
  - Musculoskeletal disorder [Not Recovered/Not Resolved]

NARRATIVE: CASE EVENT DATE: 201911
